FAERS Safety Report 15144530 (Version 1)
Quarter: 2018Q3

REPORT INFORMATION
  Report Type: Spontaneous
  Country: US (occurrence: US)
  Receive Date: 20180713
  Receipt Date: 20180713
  Transmission Date: 20181010
  Serious: No
  Sender: FDA-Public Use
  Company Number: US-NOVOPROD-607133

PATIENT
  Sex: Female

DRUGS (2)
  1. FIASP 3ML PDS290 [Suspect]
     Active Substance: INSULIN ASPART
     Indication: DIABETES MELLITUS
     Dosage: UNK
     Route: 058
     Dates: start: 2018
  2. FIASP 3ML PDS290 [Suspect]
     Active Substance: INSULIN ASPART
     Dosage: CORRECTION DOSE
     Route: 058
     Dates: start: 20180615, end: 20180615

REACTIONS (2)
  - Blood glucose increased [Unknown]
  - Product quality issue [Unknown]

NARRATIVE: CASE EVENT DATE: 2018
